FAERS Safety Report 7585098-4 (Version None)
Quarter: 2011Q3

REPORT INFORMATION
  Report Type: 
  Country: None (occurrence: None)
  Receive Date: 20110701
  Receipt Date: 20110620
  Transmission Date: 20111222
  Serious: Yes (Other)
  Sender: FDA-Public Use
  Company Number: CO-AMGEN-COLCT2010002280

PATIENT
  Sex: Female

DRUGS (4)
  1. ETANERCEPT [Suspect]
     Indication: RHEUMATOID ARTHRITIS
     Dosage: 50 MG, QWK
     Dates: start: 20081127
  2. CHLOROQUINE [Concomitant]
     Dosage: UNK
     Dates: start: 20101201
  3. PREDNISOLONE [Concomitant]
     Dosage: UNK
     Dates: start: 20101201
  4. METHOTREXATE [Concomitant]
     Dosage: UNK
     Dates: end: 20101201

REACTIONS (5)
  - HEADACHE [None]
  - TOOTH INFECTION [None]
  - HYPERSENSITIVITY [None]
  - WHITE BLOOD CELL COUNT DECREASED [None]
  - BLINDNESS [None]
